FAERS Safety Report 9260858 (Version 1)
Quarter: 2013Q2

REPORT INFORMATION
  Report Type: Spontaneous
  Country: US (occurrence: US)
  Receive Date: 20130429
  Receipt Date: 20130429
  Transmission Date: 20140414
  Serious: No
  Sender: FDA-Public Use
  Company Number: US-AMGEN-USASP2012019153

PATIENT
  Sex: Female

DRUGS (1)
  1. SENSIPAR [Suspect]
     Indication: DIALYSIS
     Dosage: 30 MG, 2 TIMES/WK
     Route: 048
     Dates: start: 201107

REACTIONS (3)
  - Chest discomfort [Unknown]
  - Bone pain [Unknown]
  - Wrong technique in drug usage process [Unknown]
